FAERS Safety Report 19717068 (Version 1)
Quarter: 2021Q3

REPORT INFORMATION
  Report Type: Spontaneous
  Country: US (occurrence: US)
  Receive Date: 20210819
  Receipt Date: 20210819
  Transmission Date: 20211014
  Serious: Yes (Hospitalization, Other)
  Sender: FDA-Public Use
  Company Number: US-NOVOPROD-837729

PATIENT
  Sex: Male

DRUGS (1)
  1. OZEMPIC [Suspect]
     Active Substance: SEMAGLUTIDE
     Indication: TYPE 2 DIABETES MELLITUS
     Dosage: 0.5 MG, QW
     Route: 058
     Dates: start: 2020

REACTIONS (19)
  - Visual impairment [Not Recovered/Not Resolved]
  - Hypoglycaemia [Not Recovered/Not Resolved]
  - Rash pruritic [Not Recovered/Not Resolved]
  - Dysphagia [Not Recovered/Not Resolved]
  - Diarrhoea [Not Recovered/Not Resolved]
  - Vomiting [Not Recovered/Not Resolved]
  - Heart rate increased [Not Recovered/Not Resolved]
  - Syncope [Not Recovered/Not Resolved]
  - Haematoma [Unknown]
  - Feeling jittery [Not Recovered/Not Resolved]
  - Irritability [Not Recovered/Not Resolved]
  - Seizure [Not Recovered/Not Resolved]
  - Tremor [Not Recovered/Not Resolved]
  - Pollakiuria [Not Recovered/Not Resolved]
  - Muscular weakness [Not Recovered/Not Resolved]
  - Poor quality sleep [Not Recovered/Not Resolved]
  - Anxiety [Not Recovered/Not Resolved]
  - Head injury [Recovering/Resolving]
  - Limb injury [Unknown]

NARRATIVE: CASE EVENT DATE: 2020
